FAERS Safety Report 8075848-5 (Version None)
Quarter: 2012Q1

REPORT INFORMATION
  Report Type: 
  Country: None (occurrence: None)
  Receive Date: 20120127
  Receipt Date: 20120125
  Transmission Date: 20120608
  Serious: Yes (Other)
  Sender: FDA-Public Use
  Company Number: US-PFIZER INC-2012017374

PATIENT
  Sex: Female
  Weight: 63.492 kg

DRUGS (8)
  1. ASPIRIN [Concomitant]
     Dosage: 81 MG, DAILY
  2. ACETAMINOPHEN [Concomitant]
     Indication: SCIATICA
     Dosage: UNK, AS NEEDED
  3. NEURONTIN [Concomitant]
     Indication: SCIATICA
     Dosage: UNK
  4. CHANTIX [Suspect]
     Indication: SMOKING CESSATION THERAPY
     Dosage: UNK
     Route: 048
     Dates: start: 20111222, end: 20111230
  5. GABAPENTIN [Concomitant]
     Indication: SCIATICA
     Dosage: UNK
  6. VITAMIN D [Concomitant]
     Indication: ROUTINE HEALTH MAINTENANCE
     Dosage: UNK
  7. IBUPROFEN [Concomitant]
     Indication: SCIATICA
     Dosage: UNK, AS NEEDED
  8. COENZYME Q10 [Concomitant]
     Indication: IMMUNE ENHANCEMENT THERAPY
     Dosage: UNK

REACTIONS (4)
  - BLOOD PRESSURE INCREASED [None]
  - ANXIETY [None]
  - NAUSEA [None]
  - FEELING ABNORMAL [None]
